FAERS Safety Report 7707209-X (Version None)
Quarter: 2011Q3

REPORT INFORMATION
  Report Type: 
  Country: None (occurrence: None)
  Receive Date: 20110819
  Receipt Date: 20110812
  Transmission Date: 20111222
  Serious: Yes (Other)
  Sender: FDA-Public Use
  Company Number: 1000021728

PATIENT
  Age: 72 Year
  Sex: Male
  Weight: 83.46 kg

DRUGS (11)
  1. TRAZODONE(TRAZODONE)(TRAZODONE) [Concomitant]
  2. LASIX [Concomitant]
  3. CLONAZEPAM [Concomitant]
  4. LIPITOR (ATORVASTATIN CALCIUM) (ATORVASTIN CALCIUM) [Concomitant]
  5. ASPIRIN [Concomitant]
  6. VITAMIN D(VITAMIN D)(VITAMIN D) [Concomitant]
  7. POTASSIUM(POTASSIUM)(POTASSIUM) [Concomitant]
  8. COREG(CARVEDILOL)(CARVEDILOL) [Concomitant]
  9. METOPROLOL SUCCINATE [Concomitant]
  10. OMEPRAZOLE [Concomitant]
  11. BYSTOLIC [Suspect]
     Indication: CORONARY ARTERY DISEASE
     Dates: start: 20110211, end: 20110625

REACTIONS (5)
  - RED BLOOD CELL COUNT DECREASED [None]
  - CARDIAC FAILURE [None]
  - HAEMOGLOBIN DECREASED [None]
  - WHITE BLOOD CELL COUNT DECREASED [None]
  - HAEMATOCRIT DECREASED [None]
